FAERS Safety Report 4431711-X (Version None)
Quarter: 2004Q3

REPORT INFORMATION
  Report Type: 
  Country: None (occurrence: None)
  Receive Date: 20040825
  Receipt Date: 20040810
  Transmission Date: 20050211
  Serious: Yes (Death, Hospitalization)
  Sender: FDA-Public Use
  Company Number: PHHO2004NL11267

PATIENT
  Age: 54 Year
  Sex: Female
  Weight: 70 kg

DRUGS (3)
  1. NEORAL [Suspect]
     Indication: LIVER TRANSPLANT
     Dosage: 80 MG/DAILY
     Route: 048
     Dates: start: 20040731, end: 20040810
  2. CLAFORAN [Suspect]
     Indication: LIVER TRANSPLANT
     Dosage: 4 G/DAILY
     Route: 048
     Dates: start: 20040718, end: 20040731
  3. MEROPENEM [Suspect]
     Route: 042
     Dates: start: 20040801, end: 20040803

REACTIONS (5)
  - CEREBRAL HAEMORRHAGE [None]
  - CLOSTRIDIAL INFECTION [None]
  - COLECTOMY [None]
  - PSEUDOMONAS INFECTION [None]
  - TOXIC DILATATION OF COLON [None]
